FAERS Safety Report 4551855-1 (Version None)
Quarter: 2005Q1

REPORT INFORMATION
  Report Type: 
  Country: None (occurrence: None)
  Receive Date: 20050111
  Receipt Date: 20050105
  Transmission Date: 20050727
  Serious: Yes (Other)
  Sender: FDA-Public Use
  Company Number: FRWYE319306JAN05

PATIENT
  Age: 74 Year
  Sex: Female

DRUGS (3)
  1. BISOPROLOL FUMARATE [Suspect]
     Indication: HYPERTENSION
     Dosage: 10 MG 1 X PER 1 DAY, ORAL
     Route: 048
     Dates: start: 20000101
  2. BISOPROLOL FUMARATE [Suspect]
     Indication: TACHYCARDIA
     Dosage: 10 MG 1 X PER 1 DAY, ORAL
     Route: 048
     Dates: start: 20000101
  3. LORAZEPAM [Concomitant]

REACTIONS (4)
  - ANKLE FRACTURE [None]
  - FALL [None]
  - LOSS OF CONSCIOUSNESS [None]
  - MALAISE [None]
